FAERS Safety Report 8425970-6 (Version None)
Quarter: 2012Q2

REPORT INFORMATION
  Report Type: 
  Country: None (occurrence: None)
  Receive Date: 20120606
  Receipt Date: 20120606
  Transmission Date: 20120825
  Serious: Yes (Other)
  Sender: FDA-Public Use
  Company Number: None

PATIENT
  Age: 51 Year
  Sex: Female

DRUGS (1)
  1. BOTOX [Suspect]
     Indication: MIGRAINE
     Dosage: INJECT 200 UNIT EVERY 3 MO INTRA-MUSCULARLY
     Route: 030
     Dates: start: 20110127, end: 20120308

REACTIONS (1)
  - OPHTHALMOPLEGIA [None]
